FAERS Safety Report 15206602 (Version 1)
Quarter: 2018Q3

REPORT INFORMATION
  Report Type: Spontaneous
  Country: US (occurrence: US)
  Receive Date: 20180727
  Receipt Date: 20180727
  Transmission Date: 20181010
  Serious: No
  Sender: FDA-Public Use
  Company Number: US-PFIZER INC-2018302275

PATIENT

DRUGS (1)
  1. ADVIL PM [Suspect]
     Active Substance: DIPHENHYDRAMINE CITRATE\IBUPROFEN
     Indication: PAIN MANAGEMENT
     Dosage: 2 DF, 1X/DAY, (200 MG OF IBUPROFEN; AKE 2 CAPLETS BEFORE BEDTIME)

REACTIONS (1)
  - Drug effect incomplete [Unknown]
